FAERS Safety Report 6806441-7 (Version None)
Quarter: 2010Q2

REPORT INFORMATION
  Report Type: 
  Country: None (occurrence: None)
  Receive Date: 20100629
  Receipt Date: 20080305
  Transmission Date: 20101027
  Serious: No
  Sender: FDA-Public Use
  Company Number: US-PFIZER INC-2008018575

PATIENT
  Sex: Male
  Weight: 113.63 kg

DRUGS (4)
  1. VIAGRA [Suspect]
     Indication: ERECTILE DYSFUNCTION
     Dates: start: 20071101
  2. LISINOPRIL [Concomitant]
  3. PLAVIX [Concomitant]
  4. NOVOLOG [Concomitant]

REACTIONS (1)
  - DRUG INEFFECTIVE [None]
